FAERS Safety Report 23558130 (Version 1)
Quarter: 2024Q1

REPORT INFORMATION
  Report Type: Other
  Country: AR (occurrence: None)
  Receive Date: 20240223
  Receipt Date: 20240223
  Transmission Date: 20240410
  Serious: Yes (Hospitalization)
  Sender: FDA-Public Use
  Company Number: AR-ROCHE-3513474

PATIENT
  Age: 64 Year
  Sex: Female

DRUGS (5)
  1. BEVACIZUMAB [Suspect]
     Active Substance: BEVACIZUMAB
     Indication: Scleroderma
     Route: 042
  2. RIOCIGUAT [Concomitant]
     Active Substance: RIOCIGUAT
  3. MACITENTAN [Concomitant]
     Active Substance: MACITENTAN
  4. NIFEDIPINE [Concomitant]
     Active Substance: NIFEDIPINE
  5. ROMIPLOSTIM [Concomitant]
     Active Substance: ROMIPLOSTIM
     Dosage: 5 MCG/KG ON DAY 6, 3 MCG/KG ON DAY 14

REACTIONS (2)
  - Thrombocytopenia [Recovering/Resolving]
  - Off label use [Unknown]
